FAERS Safety Report 7356967-5 (Version None)
Quarter: 2011Q1

REPORT INFORMATION
  Report Type: 
  Country: None (occurrence: None)
  Receive Date: 20110317
  Receipt Date: 20071106
  Transmission Date: 20110831
  Serious: No
  Sender: FDA-Public Use
  Company Number: 2007BI023745

PATIENT
  Age: 51 Year
  Sex: Female

DRUGS (1)
  1. TYSABRI [Suspect]
     Indication: MULTIPLE SCLEROSIS
     Route: 042
     Dates: start: 20070212, end: 20080811

REACTIONS (4)
  - HERPES ZOSTER [None]
  - MULTIPLE SCLEROSIS [None]
  - CENTRAL NERVOUS SYSTEM LESION [None]
  - PNEUMONIA [None]
